FAERS Safety Report 9013275 (Version 1)
Quarter: 2013Q1

REPORT INFORMATION
  Report Type: Spontaneous
  Country: AU (occurrence: AU)
  Receive Date: 20130114
  Receipt Date: 20130114
  Transmission Date: 20140127
  Serious: Yes (Hospitalization)
  Sender: FDA-Public Use
  Company Number: AU-ASTRAZENECA-2013SE00845

PATIENT
  Age: 51 Year
  Sex: 0

DRUGS (13)
  1. RHINOCORT AQUEOUS [Suspect]
     Route: 045
  2. SYMBICORT [Suspect]
     Dosage: 200/6 MCG, DAILY
     Route: 055
  3. ATACAND PLUS [Interacting]
     Dosage: 32/12.5 MG, DAILY
     Route: 048
  4. LITHIUM CARBONATE [Interacting]
  5. QUETIAPINE [Suspect]
  6. YASMIN [Suspect]
  7. E-MYCIN [Suspect]
  8. EUTROXSIG [Suspect]
  9. SOLONE [Suspect]
  10. KALMA (ALPRAZOLAM) [Suspect]
  11. AQUINAFIL [Concomitant]
  12. AVANZA SOLTAB [Concomitant]
  13. PRISTIQ [Concomitant]

REACTIONS (5)
  - Drug interaction [Not Recovered/Not Resolved]
  - Toxicity to various agents [Not Recovered/Not Resolved]
  - Electrolyte imbalance [Not Recovered/Not Resolved]
  - Blood potassium decreased [Not Recovered/Not Resolved]
  - Electrocardiogram QT prolonged [Not Recovered/Not Resolved]
